FAERS Safety Report 21111589 (Version 1)
Quarter: 2022Q3

REPORT INFORMATION
  Report Type: Spontaneous
  Country: US (occurrence: None)
  Receive Date: 20220721
  Receipt Date: 20220721
  Transmission Date: 20221027
  Serious: Yes (Hospitalization)
  Sender: FDA-Public Use
  Company Number: None

PATIENT
  Age: 53 Year
  Sex: Female

DRUGS (1)
  1. RIVAROXABAN [Suspect]
     Active Substance: RIVAROXABAN
     Dosage: 20 MG EVERY DAY PO
     Route: 048
     Dates: start: 20160826

REACTIONS (3)
  - Urinary retention [None]
  - Bladder obstruction [None]
  - Haematuria [None]

NARRATIVE: CASE EVENT DATE: 20211010
